FAERS Safety Report 5666735-8 (Version None)
Quarter: 2008Q1

REPORT INFORMATION
  Report Type: 
  Country: None (occurrence: None)
  Receive Date: 20080315
  Receipt Date: 20071226
  Transmission Date: 20080703
  Serious: No
  Sender: FDA-Public Use
  Company Number: US-ABBOTT-07P-163-0431542-00

PATIENT
  Sex: Female
  Weight: 68.1 kg

DRUGS (2)
  1. HUMIRA [Suspect]
     Indication: PSORIATIC ARTHROPATHY
     Route: 058
     Dates: start: 20071001
  2. BP PILL [Concomitant]
     Indication: HYPERTENSION
     Route: 048

REACTIONS (6)
  - HEADACHE [None]
  - HOT FLUSH [None]
  - HYPERAESTHESIA [None]
  - MAGNESIUM DEFICIENCY [None]
  - NAUSEA [None]
  - NIPPLE PAIN [None]
